FAERS Safety Report 4306937-6 (Version None)
Quarter: 2004Q1

REPORT INFORMATION
  Report Type: 
  Country: None (occurrence: None)
  Receive Date: 20040227
  Receipt Date: 19960108
  Transmission Date: 20041129
  Serious: Yes (Death, Life-Threatening, Hospitalization, Disabling, Other)
  Sender: FDA-Public Use
  Company Number: WAES 95117745

PATIENT
  Age: 65 Year
  Sex: Male
  Weight: 73 kg

DRUGS (9)
  1. DILTIAZEM [Suspect]
     Dates: end: 19951031
  2. FUROSEMIDE [Suspect]
     Dates: end: 19951031
  3. GEMFIBROZIL [Suspect]
     Indication: HYPERCHOLESTEROLAEMIA
     Route: 048
  4. GLYBURIDE [Concomitant]
  5. LISINOPRIL [Suspect]
     Indication: HYPERTENSION
     Route: 048
     Dates: end: 19951031
  6. METFORMIN [Suspect]
     Dates: end: 19951031
  7. OMEPRAZOLE [Suspect]
  8. ZOCOR [Suspect]
     Indication: HYPERCHOLESTEROLAEMIA
     Route: 048
     Dates: start: 19950925, end: 19951029
  9. ZOCOR [Suspect]
     Route: 048
     Dates: start: 19910101

REACTIONS (9)
  - ACUTE MYOCARDIAL INFARCTION [None]
  - ANAEMIA [None]
  - ANURIA [None]
  - ASTHENIA [None]
  - CARDIAC ARREST [None]
  - HAEMODIALYSIS [None]
  - MYOSITIS [None]
  - RENAL FAILURE ACUTE [None]
  - RHABDOMYOLYSIS [None]
